FAERS Safety Report 6244526-7 (Version None)
Quarter: 2009Q2

REPORT INFORMATION
  Report Type: 
  Country: None (occurrence: None)
  Receive Date: 20090619
  Receipt Date: 20090507
  Transmission Date: 20091009
  Serious: No
  Sender: FDA-Public Use
  Company Number: ALL1-2009-01305

PATIENT
  Age: 9 Year
  Sex: Male

DRUGS (1)
  1. VYVANSE [Suspect]
     Indication: DRUG USE FOR UNKNOWN INDICATION
     Dosage: 1X/DAY:QD, ORAL
     Route: 048
     Dates: start: 20090429

REACTIONS (5)
  - HYPERHIDROSIS [None]
  - HYPOVENTILATION [None]
  - PALLOR [None]
  - STARING [None]
  - WHEEZING [None]
